FAERS Safety Report 9124619 (Version 1)
Quarter: 2013Q1

REPORT INFORMATION
  Report Type: Spontaneous
  Country: FR (occurrence: FR)
  Receive Date: 20130227
  Receipt Date: 20130227
  Transmission Date: 20140127
  Serious: Yes (Life-Threatening, Other)
  Sender: FDA-Public Use
  Company Number: FR-PFIZER INC-2013066060

PATIENT
  Age: 51 Year
  Sex: Male

DRUGS (5)
  1. TORISEL [Suspect]
     Indication: RENAL CANCER
     Dosage: 25 MG/ML, UNK
     Route: 042
     Dates: start: 20121210, end: 20121210
  2. POLARAMIN [Concomitant]
     Dosage: 5MG/1ML, UNK
     Route: 042
     Dates: start: 20121210, end: 20121210
  3. PRIMPERAN [Concomitant]
     Dosage: 10 MG/2ML, UNK
     Route: 042
     Dates: start: 20121210, end: 20121210
  4. LOVENOX [Concomitant]
     Dosage: 6000 IU ANTI XA/0.6 ML, 2X/DAY
     Route: 058
     Dates: start: 201211
  5. SPIRIVA [Concomitant]
     Dosage: UNK, 1X/DAY
     Route: 055
     Dates: start: 201211

REACTIONS (4)
  - Hypersensitivity [Recovered/Resolved]
  - Dyspnoea [Unknown]
  - Rash [Unknown]
  - Bone pain [Unknown]
